FAERS Safety Report 26114722 (Version 1)
Quarter: 2025Q4

REPORT INFORMATION
  Report Type: Spontaneous
  Country: GB (occurrence: GB)
  Receive Date: 20251202
  Receipt Date: 20251202
  Transmission Date: 20260117
  Serious: Yes (Other)
  Sender: JOHNSON AND JOHNSON
  Company Number: None

PATIENT

DRUGS (2)
  1. PALIPERIDONE [Suspect]
     Active Substance: PALIPERIDONE
     Indication: Product used for unknown indication
     Dosage: BYANNLI
  2. PALIPERIDONE [Suspect]
     Active Substance: PALIPERIDONE

REACTIONS (2)
  - Mental disorder [Unknown]
  - Condition aggravated [Unknown]
